FAERS Safety Report 6519297-7 (Version None)
Quarter: 2009Q4

REPORT INFORMATION
  Report Type: 
  Country: None (occurrence: None)
  Receive Date: 20091228
  Receipt Date: 20091222
  Transmission Date: 20100525
  Serious: Yes (Death, Other)
  Sender: FDA-Public Use
  Company Number: US-CELGENEUS-163-21880-09111506

PATIENT
  Sex: Male

DRUGS (2)
  1. REVLIMID [Suspect]
     Indication: MULTIPLE MYELOMA
     Route: 048
     Dates: start: 20090506
  2. REVLIMID [Suspect]
     Route: 048
     Dates: start: 20080805

REACTIONS (2)
  - PULMONARY EMBOLISM [None]
  - THROMBOSIS [None]
